FAERS Safety Report 25530017 (Version 1)
Quarter: 2025Q3

REPORT INFORMATION
  Report Type: Spontaneous
  Country: EU (occurrence: EU)
  Receive Date: 20250708
  Receipt Date: 20250708
  Transmission Date: 20251021
  Serious: Yes (Other)
  Sender: FRESENIUS KABI
  Company Number: None

PATIENT
  Age: 75 Year
  Sex: Female
  Weight: 61 kg

DRUGS (17)
  1. LIDOCAINE [Suspect]
     Active Substance: LIDOCAINE
     Indication: Local anaesthesia
     Route: 042
     Dates: start: 20250530, end: 20250530
  2. OMNIPAQUE [Suspect]
     Active Substance: IOHEXOL
     Indication: Angiocardiogram
     Route: 042
     Dates: start: 20250530, end: 20250530
  3. VERAPAMIL HYDROCHLORIDE [Suspect]
     Active Substance: VERAPAMIL HYDROCHLORIDE
     Indication: Angiocardiogram
     Route: 042
     Dates: start: 20250530, end: 20250530
  4. DIAMOX SEQUELS [Suspect]
     Active Substance: ACETAZOLAMIDE
     Indication: Product used for unknown indication
     Route: 042
     Dates: start: 20250518, end: 20250531
  5. URAPIDIL HYDROCHLORIDE [Suspect]
     Active Substance: URAPIDIL HYDROCHLORIDE
     Indication: Hypertension
     Route: 042
     Dates: start: 20250528, end: 20250604
  6. VIALEBEX [Suspect]
     Active Substance: ALBUMIN HUMAN
     Indication: Hypoalbuminaemia
     Route: 042
     Dates: start: 20250527, end: 20250529
  7. VIALEBEX [Suspect]
     Active Substance: ALBUMIN HUMAN
     Route: 042
     Dates: start: 20250528, end: 20250528
  8. VIALEBEX [Suspect]
     Active Substance: ALBUMIN HUMAN
     Route: 042
     Dates: start: 20250527, end: 20250527
  9. MORPHINE [Suspect]
     Active Substance: MORPHINE
     Indication: Pain
     Dates: start: 20250527
  10. MIDAZOLAM HYDROCHLORIDE [Suspect]
     Active Substance: MIDAZOLAM HYDROCHLORIDE
     Indication: Anxiety
     Dates: start: 20250527
  11. EMPAGLIFLOZIN [Concomitant]
     Active Substance: EMPAGLIFLOZIN
     Indication: Product used for unknown indication
  12. MOVICOL [SODIUM BICARBONATE, POTASSIUM CHLORIDE, SODIUM CHLORIDE, E 33 [Concomitant]
     Indication: Product used for unknown indication
  13. FUROSEMIDE [Concomitant]
     Active Substance: FUROSEMIDE
     Indication: Product used for unknown indication
  14. ATORVASTATIN [Concomitant]
     Active Substance: ATORVASTATIN
     Indication: Product used for unknown indication
  15. PANTOPRAZOLE [Concomitant]
     Active Substance: PANTOPRAZOLE
     Indication: Product used for unknown indication
  16. HEPARIN CALCIUM [Concomitant]
     Active Substance: HEPARIN CALCIUM
     Indication: Product used for unknown indication
  17. PERINDOPRIL [Concomitant]
     Active Substance: PERINDOPRIL
     Indication: Product used for unknown indication

REACTIONS (1)
  - Rash pustular [Recovered/Resolved with Sequelae]

NARRATIVE: CASE EVENT DATE: 20250531
